FAERS Safety Report 10360521 (Version 2)
Quarter: 2014Q3

REPORT INFORMATION
  Report Type: Spontaneous
  Country: CO (occurrence: None)
  Receive Date: 20140730
  Receipt Date: 20140806
  Transmission Date: 20150326
  Serious: Yes (Disabling, Other)
  Sender: FDA-Public Use
  Company Number: 2014-20061

PATIENT
  Age: 73 Year
  Sex: Male

DRUGS (3)
  1. EYLEA [Suspect]
     Active Substance: AFLIBERCEPT
     Indication: AGE-RELATED MACULAR DEGENERATION
     Dosage: UNK, INTRAOCULAR
     Route: 031
     Dates: start: 20130520, end: 201312
  2. AMLODIPINE [Concomitant]
     Active Substance: AMLODIPINE BESYLATE
  3. LOSARTAN [Concomitant]
     Active Substance: LOSARTAN

REACTIONS (4)
  - Drug ineffective [None]
  - Carotid artery occlusion [None]
  - Blindness unilateral [None]
  - Cerebrovascular accident [None]

NARRATIVE: CASE EVENT DATE: 201402
